FAERS Safety Report 6729632-2 (Version None)
Quarter: 2010Q2

REPORT INFORMATION
  Report Type: 
  Country: None (occurrence: None)
  Receive Date: 20100512
  Receipt Date: 20100428
  Transmission Date: 20101027
  Serious: Yes (Hospitalization, Other)
  Sender: FDA-Public Use
  Company Number: 2010AP000888

PATIENT
  Age: 59 Year
  Sex: Female

DRUGS (5)
  1. HYDROCHLOROTHIAZIDE [Suspect]
     Dosage: 50 MG; QD
  2. SIMVASTATIN [Concomitant]
  3. CALCIUM CARBONATE [Concomitant]
  4. COLECALCIFEROL [Concomitant]
  5. LEVOTHYROXINE SODIUM [Concomitant]

REACTIONS (15)
  - BLOOD CHLORIDE DECREASED [None]
  - BLOOD CREATINE INCREASED [None]
  - BLOOD GLUCOSE INCREASED [None]
  - BLOOD MAGNESIUM DECREASED [None]
  - BLOOD POTASSIUM DECREASED [None]
  - BLOOD SODIUM DECREASED [None]
  - BLOOD UREA INCREASED [None]
  - DRY MOUTH [None]
  - FATIGUE [None]
  - HYPERCALCAEMIA [None]
  - HYPERREFLEXIA [None]
  - LETHARGY [None]
  - PANCREATITIS ACUTE [None]
  - SKIN TURGOR DECREASED [None]
  - SOMNOLENCE [None]
